FAERS Safety Report 11750615 (Version 2)
Quarter: 2015Q4

REPORT INFORMATION
  Report Type: Report from Study
  Country: BR (occurrence: BR)
  Receive Date: 20151118
  Receipt Date: 20151120
  Transmission Date: 20160304
  Serious: Yes (Death)
  Sender: FDA-Public Use
  Company Number: PHHY2015BR150261

PATIENT
  Sex: Female
  Weight: 55 kg

DRUGS (1)
  1. ONBREZ BREEZHALER [Suspect]
     Active Substance: INDACATEROL
     Indication: LUNG DISORDER
     Dosage: 150 UG, QD
     Route: 065

REACTIONS (9)
  - Chronic obstructive pulmonary disease [Fatal]
  - Weight decreased [Unknown]
  - Cardiac disorder [Fatal]
  - Feeding disorder [Fatal]
  - Malnutrition [Fatal]
  - Pulmonary oedema [Fatal]
  - Product use issue [Unknown]
  - Acute respiratory failure [Fatal]
  - Cardiac failure [Fatal]
